FAERS Safety Report 18775018 (Version 1)
Quarter: 2021Q1

REPORT INFORMATION
  Report Type: Spontaneous
  Country: JP (occurrence: JP)
  Receive Date: 20210122
  Receipt Date: 20210122
  Transmission Date: 20210419
  Serious: Yes (Other)
  Sender: FDA-Public Use
  Company Number: NVSJ2021JP001103

PATIENT
  Age: 54 Year
  Sex: Male

DRUGS (1)
  1. SANDIMMUN INFUSION [Suspect]
     Active Substance: CYCLOSPORINE
     Indication: AUTOIMMUNE HEPATITIS
     Dosage: UNK
     Route: 041

REACTIONS (2)
  - Cytomegalovirus viraemia [Recovered/Resolved]
  - Product use in unapproved indication [Unknown]
